FAERS Safety Report 4874905-1 (Version None)
Quarter: 2006Q1

REPORT INFORMATION
  Report Type: 
  Country: None (occurrence: None)
  Receive Date: 20060104
  Receipt Date: 20051221
  Transmission Date: 20060701
  Serious: Yes (Other)
  Sender: FDA-Public Use
  Company Number: 002#1#2004-00292

PATIENT
  Age: 62 Year
  Sex: Male

DRUGS (12)
  1. HYOSCYAMINE-SULFATE-EXTENDED-RELEASE - 0.37MG-TABL [Suspect]
     Dosage: .375, ORAL
     Route: 048
     Dates: start: 20041013, end: 20041201
  2. SERTRALINE [Suspect]
     Indication: MAJOR DEPRESSION
     Dosage: 100 MG, 1 IN 1 D, ORAL
     Route: 048
     Dates: start: 20040701, end: 20041201
  3. METOCLOPRAMIDE [Suspect]
     Indication: GASTRIC DISORDER
     Dosage: ORAL
     Route: 048
     Dates: start: 20040701
  4. ASPIRIN [Concomitant]
  5. DOCUSATE [Concomitant]
  6. MULTI-VITAMIN [Concomitant]
  7. ATORVASTATIN CALCIUM [Concomitant]
  8. SIMETHICONE [Concomitant]
  9. ESOMEPRAZOLE [Concomitant]
  10. ... [Concomitant]
  11. METOPROLOL SUCCINATE [Concomitant]
  12. FAMOTIDINE [Concomitant]

REACTIONS (9)
  - BRUXISM [None]
  - DEPRESSION [None]
  - DYSTONIA [None]
  - GASTRIC DISORDER [None]
  - ORAL SOFT TISSUE DISORDER [None]
  - SUICIDAL IDEATION [None]
  - TARDIVE DYSKINESIA [None]
  - TREMOR [None]
  - TRISMUS [None]
